FAERS Safety Report 6083762 (Version 2)
Quarter: 2013Q3

REPORT INFORMATION
  Report Type: Spontaneous
  Country: GB (occurrence: None)
  Receive Date: 20060629
  Receipt Date: 20130823
  Transmission Date: 20140515
  Serious: Yes (Hospitalization)
  Sender: FDA-Public Use
  Company Number: 2006US-02629

PATIENT
  Age: 36 Year
  Sex: Female

DRUGS (1)
  1. IBUPROFEN [Suspect]
     Indication: HEADACHE

REACTIONS (15)
  - Drug reaction with eosinophilia and systemic symptoms [None]
  - Dermatitis exfoliative generalised [None]
  - Blood creatine increased [None]
  - Renal disorder [None]
  - Granuloma [None]
  - Tubulointerstitial nephritis [None]
  - Hepatic failure [None]
  - Drug reaction with eosinophilia and systemic symptoms [None]
  - Lymphadenopathy [None]
  - Blood creatinine increased [None]
  - Dermatitis exfoliative [None]
  - Rash [None]
  - Tubulointerstitial nephritis [None]
  - Drug reaction with eosinophilia and systemic symptoms [None]
  - Idiosyncratic drug reaction [None]
